FAERS Safety Report 7031518-3 (Version None)
Quarter: 2010Q4

REPORT INFORMATION
  Report Type: 
  Country: None (occurrence: None)
  Receive Date: 20101006
  Receipt Date: 20101006
  Transmission Date: 20110411
  Serious: Yes (Other)
  Sender: FDA-Public Use
  Company Number: None

PATIENT
  Sex: Male
  Weight: 86.1834 kg

DRUGS (1)
  1. PLAVIX [Suspect]
     Indication: PLATELET AGGREGATION INHIBITION
     Dosage: 75MG ONE DAILY PO
     Route: 048
     Dates: start: 20081102, end: 20081207

REACTIONS (1)
  - IDIOPATHIC THROMBOCYTOPENIC PURPURA [None]
